FAERS Safety Report 4626345-8 (Version None)
Quarter: 2005Q2

REPORT INFORMATION
  Report Type: 
  Country: None (occurrence: None)
  Receive Date: 20050404
  Receipt Date: 20050401
  Transmission Date: 20051028
  Serious: Yes (Death, Hospitalization)
  Sender: FDA-Public Use
  Company Number: US-GLAXOSMITHKLINE-A0552207A

PATIENT
  Age: 63 Year
  Sex: Male
  Weight: 96.1 kg

DRUGS (7)
  1. TOPOTECAN [Suspect]
     Dosage: 4MGM2 WEEKLY
     Route: 042
     Dates: start: 20040624, end: 20040624
  2. LOTREL [Concomitant]
     Indication: HYPERTENSION
     Dates: start: 20030801
  3. HYDROCODONE [Concomitant]
     Indication: PAIN
     Dosage: 2TAB AS REQUIRED
     Dates: start: 20040621
  4. HYDROCHLOROTHIAZIDE [Concomitant]
     Indication: HYPERTENSION
     Dosage: 25MG PER DAY
     Dates: start: 20030801
  5. VIOXX [Concomitant]
     Dosage: 25MG PER DAY
     Dates: start: 20040617
  6. COMPAZINE [Concomitant]
     Indication: NAUSEA
     Dosage: 10MG AS REQUIRED
     Dates: start: 20030801
  7. TRANSFUSION [Concomitant]
     Dates: start: 20040706

REACTIONS (10)
  - CARDIAC ARREST [None]
  - CONFUSIONAL STATE [None]
  - ELECTROMECHANICAL DISSOCIATION [None]
  - HEPATOTOXICITY [None]
  - HYPERKALAEMIA [None]
  - LIVER FUNCTION TEST ABNORMAL [None]
  - OEDEMA PERIPHERAL [None]
  - RENAL FAILURE [None]
  - RENAL FAILURE ACUTE [None]
  - TACHYCARDIA [None]
